FAERS Safety Report 13635123 (Version 1)
Quarter: 2017Q2

REPORT INFORMATION
  Report Type: Spontaneous
  Country: FR (occurrence: FR)
  Receive Date: 20170609
  Receipt Date: 20170609
  Transmission Date: 20170830
  Serious: Yes (Life-Threatening, Hospitalization, Other)
  Sender: FDA-Public Use
  Company Number: FR-ALVOGEN-2017-ALVOGEN-092273

PATIENT
  Age: 71 Year
  Sex: Male

DRUGS (13)
  1. FENTANYL. [Concomitant]
     Active Substance: FENTANYL
  2. ALLOPURINOL. [Concomitant]
     Active Substance: ALLOPURINOL
  3. CLOPIDOGREL [Concomitant]
     Active Substance: CLOPIDOGREL BISULFATE
  4. FUROSEMIDE. [Concomitant]
     Active Substance: FUROSEMIDE
  5. TAMSULOSIN [Interacting]
     Active Substance: TAMSULOSIN
     Indication: PRODUCT USED FOR UNKNOWN INDICATION
  6. MORPHINE [Interacting]
     Active Substance: MORPHINE
     Indication: PRODUCT USED FOR UNKNOWN INDICATION
     Route: 048
  7. ROSUVASTATIN. [Concomitant]
     Active Substance: ROSUVASTATIN
     Indication: MYOCARDIAL ISCHAEMIA
  8. ZOPICLONE [Concomitant]
     Active Substance: ZOPICLONE
  9. MIRTAZAPINE. [Concomitant]
     Active Substance: MIRTAZAPINE
  10. LISINOPRIL. [Suspect]
     Active Substance: LISINOPRIL
     Indication: MYOCARDIAL ISCHAEMIA
  11. PANTOPRAZOLE [Concomitant]
     Active Substance: PANTOPRAZOLE
  12. COLCHICINE. [Concomitant]
     Active Substance: COLCHICINE
  13. BUDESONIDE. [Concomitant]
     Active Substance: BUDESONIDE

REACTIONS (2)
  - Drug interaction [Recovering/Resolving]
  - Angioedema [Recovering/Resolving]
